FAERS Safety Report 6268029-9 (Version None)
Quarter: 2009Q3

REPORT INFORMATION
  Report Type: 
  Country: None (occurrence: None)
  Receive Date: 20090713
  Receipt Date: 20090706
  Transmission Date: 20100115
  Serious: Yes (Hospitalization, Other)
  Sender: FDA-Public Use
  Company Number: AE 2009-080

PATIENT
  Age: 55 Year
  Sex: Female

DRUGS (6)
  1. URELLE [Suspect]
     Indication: URINARY TRACT INFECTION
     Dates: start: 20081001
  2. HUMIRA [Suspect]
     Indication: RHEUMATOID ARTHRITIS
     Dosage: 1 IN 2 WK, SC
     Route: 058
     Dates: start: 20080901
  3. FLEXERIL [Concomitant]
  4. LORAZEPAM [Concomitant]
  5. FOLIC ACID [Concomitant]
  6. ESTRADIOL [Concomitant]

REACTIONS (17)
  - ABNORMAL DREAMS [None]
  - AMNESIA [None]
  - ANXIETY [None]
  - FEELING COLD [None]
  - FUNGAL INFECTION [None]
  - HEART RATE INCREASED [None]
  - HYPERSOMNIA [None]
  - INFUSION SITE INFECTION [None]
  - OVARIAN CYST [None]
  - PROCEDURAL COMPLICATION [None]
  - PSYCHIATRIC SYMPTOM [None]
  - SCAR [None]
  - STAPHYLOCOCCAL INFECTION [None]
  - THYROID FUNCTION TEST ABNORMAL [None]
  - TREMOR [None]
  - URINARY INCONTINENCE [None]
  - URINARY TRACT INFECTION [None]
